FAERS Safety Report 13124702 (Version 4)
Quarter: 2017Q2

REPORT INFORMATION
  Report Type: Spontaneous
  Country: US (occurrence: US)
  Receive Date: 20170118
  Receipt Date: 20170411
  Transmission Date: 20170830
  Serious: No
  Sender: FDA-Public Use
  Company Number: US-JNJFOC-20170111956

PATIENT
  Sex: Female
  Weight: 61.24 kg

DRUGS (3)
  1. INVOKANA [Suspect]
     Active Substance: CANAGLIFLOZIN
     Indication: TYPE 2 DIABETES MELLITUS
     Route: 048
     Dates: start: 2016
  2. METFORMIN [Concomitant]
     Active Substance: METFORMIN HYDROCHLORIDE
     Route: 065
  3. INVOKAMET [Suspect]
     Active Substance: CANAGLIFLOZIN\METFORMIN HYDROCHLORIDE
     Indication: TYPE 2 DIABETES MELLITUS
     Dosage: DOSE: 150/1000 MG
     Route: 048
     Dates: start: 2016

REACTIONS (9)
  - Off label use [Unknown]
  - Genital discharge [Recovered/Resolved]
  - Genital infection female [Recovered/Resolved]
  - Product physical issue [Unknown]
  - Drug prescribing error [Unknown]
  - Drug effect incomplete [Unknown]
  - Insomnia [Unknown]
  - Genital burning sensation [Recovered/Resolved]
  - Pruritus genital [Recovered/Resolved]

NARRATIVE: CASE EVENT DATE: 2016
